FAERS Safety Report 12405714 (Version 3)
Quarter: 2016Q3

REPORT INFORMATION
  Report Type: Spontaneous
  Country: US (occurrence: US)
  Receive Date: 20160526
  Receipt Date: 20160711
  Transmission Date: 20161109
  Serious: No
  Sender: FDA-Public Use
  Company Number: US-GLAXOSMITHKLINE-US2016GSK062143

PATIENT
  Age: 62 Year
  Sex: Female

DRUGS (2)
  1. ALBUTEROL. [Suspect]
     Active Substance: ALBUTEROL
     Indication: PRODUCT USED FOR UNKNOWN INDICATION
  2. FLOVENT [Suspect]
     Active Substance: FLUTICASONE PROPIONATE
     Indication: ASTHMA

REACTIONS (9)
  - Oropharyngeal pain [Unknown]
  - Cough [Unknown]
  - Palpitations [Unknown]
  - Tremor [Unknown]
  - Dyspnoea [Unknown]
  - Feeling jittery [Unknown]
  - Drug dose omission [Unknown]
  - Unevaluable event [Unknown]
  - Anxiety [Unknown]
